FAERS Safety Report 9404137 (Version 3)
Quarter: 2013Q3

REPORT INFORMATION
  Report Type: Spontaneous
  Country: CO (occurrence: CO)
  Receive Date: 20130717
  Receipt Date: 20130812
  Transmission Date: 20140515
  Serious: Yes (Hospitalization, Other)
  Sender: FDA-Public Use
  Company Number: CO-ROCHE-1249485

PATIENT
  Age: 73 Year
  Sex: Female

DRUGS (1)
  1. AVASTIN [Suspect]
     Indication: TONGUE NEOPLASM MALIGNANT STAGE UNSPECIFIED
     Route: 042
     Dates: start: 20130621

REACTIONS (5)
  - Oedema peripheral [Recovered/Resolved]
  - Renal failure acute [Recovered/Resolved]
  - Epistaxis [Recovered/Resolved]
  - Asthenia [Recovered/Resolved]
  - Tongue neoplasm malignant stage unspecified [Unknown]
